FAERS Safety Report 20485817 (Version 1)
Quarter: 2022Q1

REPORT INFORMATION
  Report Type: Spontaneous
  Country: US (occurrence: US)
  Receive Date: 20220217
  Receipt Date: 20220217
  Transmission Date: 20220424
  Serious: Yes (Death, Other)
  Sender: FDA-Public Use
  Company Number: US-PFIZER INC-202200250629

PATIENT
  Age: 28 Year
  Sex: Female

DRUGS (1)
  1. LIDOCAINE HYDROCHLORIDE [Suspect]
     Active Substance: LIDOCAINE HYDROCHLORIDE
     Dosage: UNK
     Route: 051

REACTIONS (1)
  - Death [Fatal]

NARRATIVE: CASE EVENT DATE: 20200101
